FAERS Safety Report 17892804 (Version 2)
Quarter: 2020Q2

REPORT INFORMATION
  Report Type: Report from Study
  Country: GT (occurrence: GT)
  Receive Date: 20200613
  Receipt Date: 20200622
  Transmission Date: 20200714
  Serious: Yes (Life-Threatening, Other)
  Sender: FDA-Public Use
  Company Number: GT-ROCHE-2617763

PATIENT
  Age: 41 Year
  Sex: Female

DRUGS (10)
  1. BUDESONIDE. [Concomitant]
     Active Substance: BUDESONIDE
     Indication: URTICARIA
     Dosage: UNK
     Route: 061
  2. CETRIZINE [Concomitant]
     Active Substance: CETIRIZINE HYDROCHLORIDE
     Indication: HYPERSENSITIVITY
     Route: 065
  3. LEVOCETIRIZINE;MONTELUKAST [Concomitant]
     Indication: HYPERSENSITIVITY
     Route: 065
  4. AVAMYS [Concomitant]
     Active Substance: FLUTICASONE FUROATE
     Indication: RHINITIS
     Route: 045
  5. MONTELUKAST [Suspect]
     Active Substance: MONTELUKAST SODIUM
     Indication: ANTIALLERGIC THERAPY
     Route: 065
  6. EPINASTINE. [Concomitant]
     Active Substance: EPINASTINE HYDROCHLORIDE
     Indication: ANTIALLERGIC THERAPY
     Route: 031
  7. MEROPENEM. [Suspect]
     Active Substance: MEROPENEM
     Indication: PRODUCT USED FOR UNKNOWN INDICATION
     Route: 065
  8. ALLEGRA [Concomitant]
     Active Substance: FEXOFENADINE HYDROCHLORIDE
     Indication: URTICARIA
     Route: 065
     Dates: start: 2020
  9. ESOMEPRAZOLE. [Concomitant]
     Active Substance: ESOMEPRAZOLE MAGNESIUM
     Route: 048
     Dates: start: 2020
  10. XOLAIR [Suspect]
     Active Substance: OMALIZUMAB
     Indication: URTICARIA CHRONIC
     Dosage: CONCENTRATE FOR CONCENTRATE FOR SOLUTION FOR INFUSION
     Route: 058
     Dates: start: 201811

REACTIONS (16)
  - Headache [Unknown]
  - Escherichia infection [Unknown]
  - Blister [Unknown]
  - Weight increased [Unknown]
  - Product use issue [Unknown]
  - Urticaria [Unknown]
  - Off label use [Unknown]
  - Fear [Unknown]
  - Arthritis [Unknown]
  - Nausea [Unknown]
  - Muscle rigidity [Unknown]
  - Tracheal obstruction [Unknown]
  - Fluid retention [Unknown]
  - Inflammation [Unknown]
  - Alopecia [Unknown]
  - Hypersensitivity [Unknown]

NARRATIVE: CASE EVENT DATE: 202003
